FAERS Safety Report 11240026 (Version 7)
Quarter: 2017Q3

REPORT INFORMATION
  Report Type: Spontaneous
  Country: US (occurrence: US)
  Receive Date: 20150706
  Receipt Date: 20170814
  Transmission Date: 20171127
  Serious: Yes (Death, Hospitalization, Other)
  Sender: FDA-Public Use
  Company Number: US-PFIZER INC-2015219522

PATIENT
  Age: 73 Year
  Sex: Male

DRUGS (9)
  1. INLYTA [Suspect]
     Active Substance: AXITINIB
     Dosage: 5 MG, 3X/DAY
  2. INLYTA [Suspect]
     Active Substance: AXITINIB
     Dosage: 10 MG, 2X/DAY
     Dates: start: 201506
  3. INLYTA [Suspect]
     Active Substance: AXITINIB
     Dosage: 5 MG, 2X/DAY
  4. INLYTA [Suspect]
     Active Substance: AXITINIB
     Dosage: 12.5 MG, 1X/DAY (5MG IN THE MORNING AND 1 1/2 OF A 5MG AT NIGHT)
  5. INLYTA [Suspect]
     Active Substance: AXITINIB
     Dosage: 20 MG, 1X/DAY (FOUR 5MG TABLETS PER DAY)
  6. INLYTA [Suspect]
     Active Substance: AXITINIB
     Dosage: 20 MG, UNK
  7. INLYTA [Suspect]
     Active Substance: AXITINIB
     Indication: RENAL CANCER METASTATIC
     Dosage: UNK
     Dates: start: 20150626
  8. INLYTA [Suspect]
     Active Substance: AXITINIB
     Dosage: 10 MG, 2X/DAY
     Dates: start: 2015
  9. INLYTA [Suspect]
     Active Substance: AXITINIB
     Dosage: 15 MG, UNK

REACTIONS (18)
  - Diarrhoea [Recovered/Resolved]
  - Haemorrhagic transformation stroke [Unknown]
  - Cerebrovascular accident [Unknown]
  - Feeling abnormal [Unknown]
  - Blood pressure increased [Not Recovered/Not Resolved]
  - Malaise [Unknown]
  - Sinusitis [Unknown]
  - Renal cancer stage IV [Unknown]
  - Erythema [Unknown]
  - Thrombosis [Unknown]
  - Hand-foot-and-mouth disease [Unknown]
  - Death [Fatal]
  - Disease progression [Unknown]
  - Weight decreased [Unknown]
  - Pain in extremity [Unknown]
  - Blister [Unknown]
  - Dysphonia [Unknown]
  - Diabetic foot [Unknown]

NARRATIVE: CASE EVENT DATE: 20170716
